FAERS Safety Report 7740574-6 (Version None)
Quarter: 2011Q3

REPORT INFORMATION
  Report Type: 
  Country: None (occurrence: None)
  Receive Date: 20110909
  Receipt Date: 20110908
  Transmission Date: 20111222
  Serious: Yes (Other)
  Sender: FDA-Public Use
  Company Number: UY-BAYER-2011-083180

PATIENT
  Age: 46 Year
  Sex: Male
  Weight: 80 kg

DRUGS (6)
  1. METFORMIN HCL [Concomitant]
     Dosage: 500 MG, BID
  2. DIPHENYLHYDANTOIN SODIUM [Concomitant]
     Dosage: UNK
  3. ALPRAZOLAM [Concomitant]
     Dosage: 1 MG, UNK
  4. BETASERON [Suspect]
     Dosage: 250 ?G, 4IW
     Route: 058
     Dates: start: 20090101, end: 20110904
  5. DOMPERIDONE [Concomitant]
     Dosage: 10 MG, BID
  6. OMEPRAZOLE [Concomitant]
     Dosage: 10 MG, UNK

REACTIONS (1)
  - DERMATITIS ALLERGIC [None]
